FAERS Safety Report 8860403 (Version 1)
Quarter: 2012Q4

REPORT INFORMATION
  Report Type: Report from Study
  Country: CA (occurrence: CA)
  Receive Date: 20121025
  Receipt Date: 20121025
  Transmission Date: 20130627
  Serious: Yes (Other)
  Sender: FDA-Public Use
  Company Number: CA-JNJFOC-20121008358

PATIENT
  Age: 59 Year
  Sex: Female
  Weight: 76.6 kg

DRUGS (5)
  1. REMICADE [Suspect]
     Indication: RHEUMATOID ARTHRITIS
     Route: 042
     Dates: start: 20080402
  2. BLOOD PRESSURE MEDICATION NOS [Concomitant]
     Indication: BLOOD PRESSURE
     Dosage: am (in morning)
     Route: 065
  3. PRISTIQ [Concomitant]
     Dosage: am (in morning)
     Route: 065
  4. SEROQUEL [Concomitant]
     Dosage: am (in morning)
     Route: 065
  5. PERCOCET [Concomitant]
     Dosage: am (in morning)
     Route: 065

REACTIONS (2)
  - Nephrolithiasis [Recovered/Resolved]
  - Urinary tract infection [Recovered/Resolved]
